FAERS Safety Report 24378341 (Version 1)
Quarter: 2024Q3

REPORT INFORMATION
  Report Type: Spontaneous
  Country: US (occurrence: US)
  Receive Date: 20240930
  Receipt Date: 20240930
  Transmission Date: 20241017
  Serious: Yes (Other)
  Sender: NOVARTIS
  Company Number: US-002147023-NVSC2024US190272

PATIENT

DRUGS (1)
  1. KESIMPTA [Suspect]
     Active Substance: OFATUMUMAB
     Indication: Relapsing-remitting multiple sclerosis
     Dosage: UNK
     Route: 065

REACTIONS (12)
  - Multiple sclerosis [Unknown]
  - Skin lesion [Unknown]
  - Asthenia [Unknown]
  - Vertigo [Unknown]
  - Balance disorder [Unknown]
  - Brain fog [Unknown]
  - Decreased appetite [Unknown]
  - Fatigue [Unknown]
  - Visual snow syndrome [Unknown]
  - Dysgeusia [Unknown]
  - Confusional state [Unknown]
  - Drug ineffective [Unknown]
